FAERS Safety Report 25900880 (Version 1)
Quarter: 2025Q4

REPORT INFORMATION
  Report Type: Spontaneous
  Country: US (occurrence: None)
  Receive Date: 20251009
  Receipt Date: 20251009
  Transmission Date: 20260117
  Serious: Yes (Hospitalization)
  Sender: FDA-CTU
  Company Number: None

PATIENT
  Age: 62 Year
  Sex: Female

DRUGS (21)
  1. IBRANCE [Suspect]
     Active Substance: PALBOCICLIB
     Indication: Breast cancer
     Dosage: OTHER FREQUENCY : DAILY FOR 21 DAYS ON, 7 OFF;?
     Route: 048
     Dates: start: 20250111
  2. ASPIRIN EC LOW DOSE [Concomitant]
  3. CALCIUM - D SOFTGELS [Concomitant]
  4. CLOPIDOGREL [Concomitant]
     Active Substance: CLOPIDOGREL BISULFATE
  5. FENTANYL TRANSDERMAL SYSTEM [Concomitant]
     Active Substance: FENTANYL
  6. MYRBETRIQ [Concomitant]
     Active Substance: MIRABEGRON
  7. LEVOTHYROXINE [Concomitant]
     Active Substance: LEVOTHYROXINE
  8. MAGNESIUM [Concomitant]
     Active Substance: MAGNESIUM
  9. LETROZOLE [Concomitant]
     Active Substance: LETROZOLE
  10. LEVEMIR [Concomitant]
     Active Substance: INSULIN DETEMIR
  11. METHOCARBAMOL [Concomitant]
     Active Substance: METHOCARBAMOL
  12. NOVOLOG [Concomitant]
     Active Substance: INSULIN ASPART
  13. ONDANSETRON [Concomitant]
     Active Substance: ONDANSETRON
  14. OXYBUTYNIN [Concomitant]
     Active Substance: OXYBUTYNIN
  15. ACETAMINOPHEN\OXYCODONE HYDROCHLORIDE [Concomitant]
     Active Substance: ACETAMINOPHEN\OXYCODONE HYDROCHLORIDE
  16. BUT/ACETAMINOPHEN/CAFF [Concomitant]
  17. ATORVASTATIN [Concomitant]
     Active Substance: ATORVASTATIN
  18. CITALOPRAM [Concomitant]
     Active Substance: CITALOPRAM
  19. GABAPENTIN [Concomitant]
     Active Substance: GABAPENTIN
  20. JANUMET [Concomitant]
     Active Substance: METFORMIN HYDROCHLORIDE\SITAGLIPTIN PHOSPHATE
  21. TOPIRAMATE [Concomitant]
     Active Substance: TOPIRAMATE

REACTIONS (2)
  - Coronary artery occlusion [None]
  - Therapy interrupted [None]

NARRATIVE: CASE EVENT DATE: 20250927
